FAERS Safety Report 4541353-3 (Version None)
Quarter: 2004Q4

REPORT INFORMATION
  Report Type: 
  Country: None (occurrence: None)
  Receive Date: 20041229
  Receipt Date: 20041022
  Transmission Date: 20050328
  Serious: Yes (Hospitalization, Disabling)
  Sender: FDA-Public Use
  Company Number: DE-MERCK-0410DEU00672

PATIENT
  Age: 65 Year
  Sex: Female

DRUGS (8)
  1. VIOXX [Suspect]
     Indication: BACK PAIN
     Route: 048
     Dates: start: 20020705, end: 20041006
  2. FOSAMAX [Concomitant]
     Indication: OSTEOPOROSIS
     Route: 048
  3. ESCIN [Concomitant]
     Route: 065
  4. NAFRONYL OXALATE [Concomitant]
     Route: 048
  5. HYDROCHLOROTHIAZIDE AND METOPROLOL SUCCINATE [Concomitant]
     Route: 048
  6. PHENPROCOUMON [Concomitant]
     Route: 048
  7. DIHYDRALAZINE SULFATE AND HYDROCHLOROTHIAZIDE AND RESERPINE [Concomitant]
     Route: 048
  8. CALCIUM (UNSPECIFIED) [Concomitant]
     Route: 048

REACTIONS (1)
  - BRAIN STEM INFARCTION [None]
